FAERS Safety Report 5604080-7 (Version None)
Quarter: 2008Q1

REPORT INFORMATION
  Report Type: 
  Country: None (occurrence: None)
  Receive Date: 20080128
  Receipt Date: 20080125
  Transmission Date: 20080703
  Serious: Yes (Hospitalization)
  Sender: FDA-Public Use
  Company Number: JP-BRISTOL-MYERS SQUIBB COMPANY-14055131

PATIENT
  Age: 60 Year
  Sex: Male

DRUGS (2)
  1. CISPLATIN [Suspect]
     Indication: PLEURAL MESOTHELIOMA MALIGNANT
     Route: 042
     Dates: start: 20071218
  2. ALIMTA [Suspect]
     Indication: PLEURAL MESOTHELIOMA MALIGNANT
     Route: 042
     Dates: start: 20071218

REACTIONS (3)
  - ANOREXIA [None]
  - ILEUS PARALYTIC [None]
  - VOMITING [None]
